FAERS Safety Report 19649731 (Version 12)
Quarter: 2022Q3

REPORT INFORMATION
  Report Type: Report from Study
  Country: GB (occurrence: GB)
  Receive Date: 20210802
  Receipt Date: 20220801
  Transmission Date: 20221026
  Serious: Yes (Hospitalization, Other)
  Sender: FDA-Public Use
  Company Number: GB-ROCHE-2850409

PATIENT
  Age: 72 Year
  Sex: Female
  Weight: 76 kg

DRUGS (29)
  1. CARBOPLATIN [Suspect]
     Active Substance: CARBOPLATIN
     Indication: Small cell lung cancer extensive stage
     Dosage: 500 MG
     Route: 065
     Dates: start: 20210302
  2. ATEZOLIZUMAB [Suspect]
     Active Substance: ATEZOLIZUMAB
     Indication: Small cell lung cancer extensive stage
     Dosage: 1200 MG, EVERY 3 WEEKS-ON 08/JUN/2021, MOST RECENT DOSE OF STUDY DRUGPRIOR TO AE/SAE
     Route: 041
     Dates: start: 20210302
  3. ETOPOSIDE [Suspect]
     Active Substance: ETOPOSIDE
     Indication: Small cell lung cancer extensive stage
     Dosage: 180 MG
     Route: 042
     Dates: start: 20210302
  4. ETOPOSIDE [Suspect]
     Active Substance: ETOPOSIDE
     Indication: Small cell lung cancer extensive stage
     Dosage: 700 MG
     Route: 048
     Dates: start: 20210303
  5. CIPROFLOXACIN [Concomitant]
     Active Substance: CIPROFLOXACIN
     Indication: Prophylaxis
     Dosage: UNK, 2X/DAY
     Route: 065
     Dates: start: 20210328
  6. CIPROFLOXACIN [Concomitant]
     Active Substance: CIPROFLOXACIN
     Dosage: UNK
     Route: 065
     Dates: start: 20210616
  7. DEXAMETHASONE [Concomitant]
     Active Substance: DEXAMETHASONE
     Dosage: UNK, 2X/DAY
     Route: 065
     Dates: start: 20210323
  8. DEXAMETHASONE [Concomitant]
     Active Substance: DEXAMETHASONE
     Dosage: 7 MG
     Route: 065
     Dates: start: 20210607, end: 20210607
  9. DEXAMETHASONE [Concomitant]
     Active Substance: DEXAMETHASONE
     Dosage: 8 MG
     Route: 065
     Dates: start: 20210607, end: 20210609
  10. DEXAMETHASONE [Concomitant]
     Active Substance: DEXAMETHASONE
     Dosage: UNK, 1X/DAY
     Route: 065
     Dates: start: 20210616
  11. DEXAMETHASONE [Concomitant]
     Active Substance: DEXAMETHASONE
     Dosage: UNK, 1X/DAY
     Route: 065
     Dates: start: 20211029
  12. DEXAMETHASONE [Concomitant]
     Active Substance: DEXAMETHASONE
     Dosage: UNK, 1X/DAY
     Route: 065
     Dates: start: 20211103, end: 20211117
  13. DIGOXIN [Concomitant]
     Active Substance: DIGOXIN
     Dosage: UNK UNK, 1X/DAY
     Route: 065
  14. ESOMEPRAZOLE [Concomitant]
     Active Substance: ESOMEPRAZOLE
     Dosage: UNK, 1X/DAY
     Route: 065
  15. FAMOTIDINE [Concomitant]
     Active Substance: FAMOTIDINE
     Dosage: UNK, 1X/DAY
     Route: 065
  16. FILGRASTIM [Concomitant]
     Active Substance: FILGRASTIM
     Dosage: UNK, 1X/DAY
     Route: 065
     Dates: start: 20210307
  17. PREDNISOLONE [Concomitant]
     Active Substance: PREDNISOLONE
     Dosage: UNK, 1X/DAY
     Route: 065
     Dates: start: 20210524, end: 20210612
  18. PREDNISOLONE [Concomitant]
     Active Substance: PREDNISOLONE
     Dosage: UNK, 1X/DAY
     Route: 065
     Dates: start: 20210719
  19. GLYCOPYRROLATE [Concomitant]
     Active Substance: GLYCOPYRROLATE
     Dosage: UNK, 1X/DAY
     Route: 065
  20. LEVOTHYROXINE [Concomitant]
     Active Substance: LEVOTHYROXINE
     Dosage: UNK, 1X/DAY
     Route: 065
  21. ACETAMINOPHEN [Concomitant]
     Active Substance: ACETAMINOPHEN
     Dosage: UNK
     Route: 065
     Dates: start: 20210616
  22. SPIRONOLACTONE [Concomitant]
     Active Substance: SPIRONOLACTONE
     Dosage: UNK UNK, 1X/DAY
     Route: 065
  23. TERBUTALINE [Concomitant]
     Active Substance: TERBUTALINE
     Dosage: UNK, 1X/DAY
     Route: 065
     Dates: start: 20210616
  24. CARBOCYSTEINE [Concomitant]
     Active Substance: CARBOCYSTEINE
     Dosage: UNK, 2X/DAY
     Route: 065
     Dates: start: 20211029
  25. BUMETANIDE [Concomitant]
     Active Substance: BUMETANIDE
     Dosage: UNK UNK, 1X/DAY
     Route: 065
  26. CALCIUM\CHOLECALCIFEROL [Concomitant]
     Active Substance: CALCIUM\CHOLECALCIFEROL
     Dosage: 2 DF, DAILY AUTHORIZATION/APPLICATION NUMBER:PLPI 20636/1121
     Route: 065
  27. CYANOCOBALAMIN [Concomitant]
     Active Substance: CYANOCOBALAMIN
     Dosage: UNK UNK, 1X/DAY
     Route: 065
  28. FRAGMIN [Concomitant]
     Active Substance: DALTEPARIN SODIUM
     Dosage: UNK, 2X/DAY
     Route: 065
     Dates: start: 20210616
  29. DALTEPARIN [Concomitant]
     Active Substance: DALTEPARIN
     Dosage: UNK, 1X/DAY
     Route: 065
     Dates: start: 20210616

REACTIONS (10)
  - Neutropenic sepsis [Not Recovered/Not Resolved]
  - Thrombocytopenia [Not Recovered/Not Resolved]
  - Pneumonia [Recovered/Resolved]
  - Anaemia [Not Recovered/Not Resolved]
  - Dyspnoea [Recovered/Resolved]
  - Orthostatic hypertension [Not Recovered/Not Resolved]
  - Embolism [Not Recovered/Not Resolved]
  - Arthritis [Not Recovered/Not Resolved]
  - Pyrexia [Recovered/Resolved]
  - Dyspnoea [Recovered/Resolved]

NARRATIVE: CASE EVENT DATE: 20210427
